FAERS Safety Report 7715810-2 (Version None)
Quarter: 2011Q3

REPORT INFORMATION
  Report Type: 
  Country: None (occurrence: None)
  Receive Date: 20110829
  Receipt Date: 20110829
  Transmission Date: 20111222
  Serious: Yes (Hospitalization)
  Sender: FDA-Public Use
  Company Number: None

PATIENT
  Age: 68 Year
  Sex: Male
  Weight: 111.13 kg

DRUGS (9)
  1. ATENOLOL [Concomitant]
     Route: 048
  2. REVLIMID [Suspect]
     Indication: NON-HODGKIN'S LYMPHOMA
     Dosage: 20
     Route: 048
     Dates: start: 20110531, end: 20110607
  3. RITUX [Concomitant]
     Indication: NON-HODGKIN'S LYMPHOMA
     Dosage: 800
     Route: 041
  4. OMEPRAZOLE [Concomitant]
  5. PERCOCET [Concomitant]
     Route: 048
  6. NORCO [Concomitant]
     Route: 048
  7. GLUCOPHAGE [Concomitant]
     Route: 048
  8. ZOCOR [Concomitant]
     Route: 048
  9. ASPIRIN [Concomitant]
     Route: 048

REACTIONS (3)
  - DYSPNOEA [None]
  - PALPITATIONS [None]
  - PLEURAL EFFUSION [None]
